FAERS Safety Report 12835463 (Version 3)
Quarter: 2017Q2

REPORT INFORMATION
  Report Type: Spontaneous
  Country: US (occurrence: US)
  Receive Date: 20161011
  Receipt Date: 20170414
  Transmission Date: 20170830
  Serious: No
  Sender: FDA-Public Use
  Company Number: US-TEVA-678436USA

PATIENT
  Age: 64 Year
  Sex: Female

DRUGS (2)
  1. ZECUITY [Suspect]
     Active Substance: SUMATRIPTAN SUCCINATE
     Indication: MIGRAINE
     Route: 062
  2. ZECUITY [Suspect]
     Active Substance: SUMATRIPTAN SUCCINATE
     Route: 062
     Dates: start: 20160629, end: 20160629

REACTIONS (9)
  - Application site exfoliation [Recovered/Resolved]
  - Application site papules [Recovered/Resolved]
  - Application site warmth [Recovered/Resolved]
  - Application site inflammation [Recovered/Resolved]
  - Application site scab [Recovered/Resolved]
  - Application site erythema [Recovered/Resolved]
  - Application site pruritus [Recovered/Resolved]
  - Drug effect incomplete [Unknown]
  - Application site erosion [Recovered/Resolved]

NARRATIVE: CASE EVENT DATE: 20160629
